FAERS Safety Report 6144070-1 (Version None)
Quarter: 2009Q2

REPORT INFORMATION
  Report Type: 
  Country: None (occurrence: None)
  Receive Date: 20090401
  Receipt Date: 20090320
  Transmission Date: 20091009
  Serious: Yes (Congenital Anomaly)
  Sender: FDA-Public Use
  Company Number: LTI2009A00079

PATIENT
  Age: 1 Day
  Sex: Female

DRUGS (8)
  1. ACTOS [Suspect]
     Indication: TYPE 2 DIABETES MELLITUS
     Dosage: 30 MG (15 MG, 2 IN 1 D) TRANSPLACENTAL
     Route: 064
     Dates: start: 20070101, end: 20070215
  2. GLUCOPHAGE [Suspect]
     Indication: TYPE 2 DIABETES MELLITUS
     Dosage: 3 GM (1 GM, 3 IN 1 D) TRANSPLACENTAL
     Route: 064
     Dates: start: 20070101, end: 20070215
  3. NEXIUM [Suspect]
     Dosage: 20 MG (20 MG, 1 IN 1 D) TRANSPLACENTAL
     Route: 064
     Dates: start: 20070101, end: 20070215
  4. RAMIPRIL [Suspect]
     Dosage: 10 MG (10 MG, 1 IN 1 D) TRANSPLACENTAL
     Route: 064
     Dates: start: 20070101, end: 20070215
  5. DICETEL (PINAVERIUM BROMIDE) [Suspect]
     Dosage: D TRANSPLACENTAL
     Route: 064
     Dates: start: 20070101, end: 20070215
  6. NOVOMIX (INSULIN ASPART) [Concomitant]
  7. INSULATARD NPH HUMAN [Concomitant]
  8. NOVOLOG [Concomitant]

REACTIONS (7)
  - ABSCESS OF EXTERNAL AUDITORY MEATUS [None]
  - ANOTIA [None]
  - ARRHYTHMIA NEONATAL [None]
  - CAESAREAN SECTION [None]
  - DRUG EXPOSURE DURING PREGNANCY [None]
  - NEONATAL RESPIRATORY DISTRESS SYNDROME [None]
  - PREGNANCY [None]
